FAERS Safety Report 4566358-8 (Version None)
Quarter: 2005Q1

REPORT INFORMATION
  Report Type: 
  Country: None (occurrence: None)
  Receive Date: 20050128
  Receipt Date: 20050110
  Transmission Date: 20050727
  Serious: Yes (Hospitalization, Other)
  Sender: FDA-Public Use
  Company Number: 2004093016

PATIENT
  Age: 34 Year
  Sex: Male

DRUGS (3)
  1. NIFEDIPINE [Suspect]
     Indication: ILL-DEFINED DISORDER
  2. PENICILLAMINE [Suspect]
     Indication: ILL-DEFINED DISORDER
  3. HYDROXYCHLOROQUINE SULFATE [Suspect]
     Indication: ILL-DEFINED DISORDER
     Dosage: 400 MG (1 D)

REACTIONS (8)
  - DILATATION VENTRICULAR [None]
  - EJECTION FRACTION DECREASED [None]
  - MYOPATHY [None]
  - MYOSITIS [None]
  - VENTRICULAR DYSFUNCTION [None]
  - VENTRICULAR EXTRASYSTOLES [None]
  - VENTRICULAR HYPOKINESIA [None]
  - VENTRICULAR TACHYCARDIA [None]
